FAERS Safety Report 8493482-X (Version None)
Quarter: 2012Q3

REPORT INFORMATION
  Report Type: 
  Country: None (occurrence: None)
  Receive Date: 20120706
  Receipt Date: 20120625
  Transmission Date: 20120928
  Serious: Yes (Disabling)
  Sender: FDA-Public Use
  Company Number: FI-INCYTE CORPORATION-2012IN000977

PATIENT
  Sex: Female
  Weight: 71 kg

DRUGS (12)
  1. CALCICHEW-D3 [Concomitant]
  2. NEORECORMON [Concomitant]
  3. INC424 [Suspect]
     Indication: MYELOFIBROSIS
     Dosage: 20 MG, BID
     Route: 048
     Dates: start: 20111212
  4. FELODIPINE [Concomitant]
  5. OMEPRAZOLE [Concomitant]
  6. PARATABS [Concomitant]
  7. INC424 [Suspect]
     Dosage: 25 MG, BID
     Route: 048
     Dates: start: 20120116
  8. PREDNISOLONE [Concomitant]
  9. PRIMASPAN [Concomitant]
  10. POTASSIUM CHLORIDE [Concomitant]
  11. NEURONTIN [Concomitant]
  12. TRIPTYL [Concomitant]

REACTIONS (1)
  - VISUAL IMPAIRMENT [None]
